FAERS Safety Report 12174315 (Version 1)
Quarter: 2016Q1

REPORT INFORMATION
  Report Type: Not Available
  Country: US (occurrence: US)
  Receive Date: 20160313
  Receipt Date: 20160313
  Transmission Date: 20160526
  Serious: Yes (Hospitalization)
  Sender: FDA-Public Use
  Company Number: US-ANIPHARMA-2016-US-001128

PATIENT
  Age: 45 Year
  Sex: Female

DRUGS (2)
  1. CHOLESTYRAMINE (NON-SPECIFIC) [Suspect]
     Active Substance: CHOLESTYRAMINE
  2. SEVELAMER [Suspect]
     Active Substance: SEVELAMER

REACTIONS (3)
  - Colitis ischaemic [Unknown]
  - Clostridium test positive [None]
  - Haematochezia [Unknown]
